FAERS Safety Report 6248571-7 (Version None)
Quarter: 2009Q2

REPORT INFORMATION
  Report Type: 
  Country: None (occurrence: None)
  Receive Date: 20090629
  Receipt Date: 20090617
  Transmission Date: 20091009
  Serious: Yes (Other)
  Sender: FDA-Public Use
  Company Number: US-JNJFOC-20090606622

PATIENT
  Sex: Female

DRUGS (1)
  1. RISPERDAL CONSTA [Suspect]
     Indication: DRUG USE FOR UNKNOWN INDICATION

REACTIONS (4)
  - ACCIDENTAL NEEDLE STICK [None]
  - DRUG DELIVERY SYSTEM MALFUNCTION [None]
  - DRUG EXPOSURE DURING PREGNANCY [None]
  - EXPOSURE TO CONTAMINATED DEVICE [None]
